FAERS Safety Report 5037224-9 (Version None)
Quarter: 2006Q2

REPORT INFORMATION
  Report Type: 
  Country: None (occurrence: None)
  Receive Date: 20060628
  Receipt Date: 20031002
  Transmission Date: 20061013
  Serious: Yes (Hospitalization)
  Sender: FDA-Public Use
  Company Number: SE-GLAXOSMITHKLINE-B0428462A

PATIENT
  Age: 74 Year
  Sex: Female

DRUGS (3)
  1. ACETAMINOPHEN [Suspect]
     Indication: PAIN
     Dosage: 500MG SEE DOSAGE TEXT
     Route: 048
     Dates: start: 20020101
  2. TRAMADOL HCL [Suspect]
     Indication: PAIN
     Route: 048
     Dates: start: 20020101
  3. HERACILLIN [Suspect]
     Dosage: 500MG SEE DOSAGE TEXT
     Route: 048
     Dates: start: 20020803, end: 20020909

REACTIONS (8)
  - ANOREXIA [None]
  - BLOOD BILIRUBIN INCREASED [None]
  - CHROMATURIA [None]
  - FAECES DISCOLOURED [None]
  - FATIGUE [None]
  - LIVER DISORDER [None]
  - NAUSEA [None]
  - TRANSAMINASES INCREASED [None]
